FAERS Safety Report 8621766-0 (Version None)
Quarter: 2012Q3

REPORT INFORMATION
  Report Type: 
  Country: None (occurrence: None)
  Receive Date: 20120821
  Receipt Date: 20120821
  Transmission Date: 20120928
  Serious: No
  Sender: FDA-Public Use
  Company Number: None

PATIENT
  Age: 52 Year
  Sex: Female

DRUGS (1)
  1. FORTEO 600 MCG/M2.4ML ELI LILLY [Suspect]
     Dosage: 20MCG DAILY SQ
     Dates: start: 20120221, end: 20120713

REACTIONS (4)
  - SWELLING [None]
  - MUSCLE FATIGUE [None]
  - ARTHRALGIA [None]
  - MYALGIA [None]
